FAERS Safety Report 12981409 (Version 9)
Quarter: 2020Q3

REPORT INFORMATION
  Report Type: Report from Study
  Country: IT (occurrence: IT)
  Receive Date: 20161129
  Receipt Date: 20200708
  Transmission Date: 20201102
  Serious: Yes (Other)
  Sender: FDA-Public Use
  Company Number: IT-ROCHE-1860160

PATIENT
  Age: 65 Year
  Sex: Female

DRUGS (7)
  1. VEMURAFENIB. [Suspect]
     Active Substance: VEMURAFENIB
     Route: 048
     Dates: start: 20170331, end: 20171116
  2. COBIMETINIB. [Suspect]
     Active Substance: COBIMETINIB
     Dosage: 20 MG ? FILM?COATED TABLET
     Route: 048
     Dates: end: 20170317
  3. VEMURAFENIB. [Suspect]
     Active Substance: VEMURAFENIB
     Dosage: 240 MG ? FILM?COATED TABLET
     Route: 048
     Dates: start: 20161213, end: 20170317
  4. COBIMETINIB. [Suspect]
     Active Substance: COBIMETINIB
     Route: 048
     Dates: start: 20170331, end: 20171116
  5. VEMURAFENIB. [Suspect]
     Active Substance: VEMURAFENIB
     Dosage: 240 MG ? FILM?COATED TABLET
     Route: 048
     Dates: end: 20170317
  6. COBIMETINIB. [Suspect]
     Active Substance: COBIMETINIB
     Indication: MALIGNANT MELANOMA
     Dosage: 20 MG ? FILM?COATED TABLET
     Route: 048
     Dates: start: 20161028, end: 20161114
  7. VEMURAFENIB. [Suspect]
     Active Substance: VEMURAFENIB
     Indication: MALIGNANT MELANOMA
     Route: 048
     Dates: start: 20161021, end: 20161114

REACTIONS (5)
  - Hypermagnesaemia [Recovered/Resolved]
  - Erythema [Recovered/Resolved]
  - Electrocardiogram QT prolonged [Recovered/Resolved]
  - Electrocardiogram QT prolonged [Recovered/Resolved]
  - Electrocardiogram T wave inversion [Recovered/Resolved]

NARRATIVE: CASE EVENT DATE: 20161111
